FAERS Safety Report 16230822 (Version 1)
Quarter: 2019Q2

REPORT INFORMATION
  Report Type: Report from Study
  Country: US (occurrence: US)
  Receive Date: 20190423
  Receipt Date: 20190423
  Transmission Date: 20190711
  Serious: No
  Sender: FDA-Public Use
  Company Number: PHEH2019US017078

PATIENT
  Sex: Female
  Weight: 112.94 kg

DRUGS (2)
  1. COSENTYX [Suspect]
     Active Substance: SECUKINUMAB
     Indication: PSORIASIS
  2. COSENTYX [Suspect]
     Active Substance: SECUKINUMAB
     Indication: PSORIATIC ARTHROPATHY
     Dosage: 300 MG, UNK (AT DAY 28 (DOSE 5)) THEN EVERY 4 WEEKS AS DIRECTED
     Route: 058
     Dates: start: 201902

REACTIONS (1)
  - Rash [Unknown]
